FAERS Safety Report 11082517 (Version 4)
Quarter: 2015Q2

REPORT INFORMATION
  Report Type: Spontaneous
  Country: US (occurrence: US)
  Receive Date: 20150501
  Receipt Date: 20150527
  Transmission Date: 20150821
  Serious: Yes (Hospitalization, Other)
  Sender: FDA-Public Use
  Company Number: US-TEVA-558698USA

PATIENT
  Age: 62 Year
  Sex: Female
  Weight: 80.36 kg

DRUGS (2)
  1. ACTIQ [Suspect]
     Active Substance: FENTANYL CITRATE
     Indication: PAIN
     Dosage: 1200 MICROGRAM DAILY;
     Route: 048
     Dates: start: 2008
  2. CYMBALTA [Suspect]
     Active Substance: DULOXETINE HYDROCHLORIDE
     Route: 065

REACTIONS (8)
  - Abdominal pain [Not Recovered/Not Resolved]
  - Influenza [Not Recovered/Not Resolved]
  - Pain [Unknown]
  - Nephrolithiasis [Not Recovered/Not Resolved]
  - Adverse event [Unknown]
  - Biliary dilatation [Not Recovered/Not Resolved]
  - Hepatic cirrhosis [Unknown]
  - Vomiting [Unknown]

NARRATIVE: CASE EVENT DATE: 20150420
